FAERS Safety Report 7547465-4 (Version None)
Quarter: 2011Q2

REPORT INFORMATION
  Report Type: 
  Country: None (occurrence: None)
  Receive Date: 20110614
  Receipt Date: 20110607
  Transmission Date: 20111010
  Serious: Yes (Hospitalization)
  Sender: FDA-Public Use
  Company Number: US-US-EMD SERONO, INC.-7053116

PATIENT
  Sex: Male

DRUGS (1)
  1. REBIF [Suspect]
     Indication: MULTIPLE SCLEROSIS
     Route: 058
     Dates: start: 20110204

REACTIONS (5)
  - SEASONAL ALLERGY [None]
  - CHEST PAIN [None]
  - MUSCLE TWITCHING [None]
  - INJECTION SITE HAEMATOMA [None]
  - DYSPNOEA [None]
